FAERS Safety Report 18409190 (Version 1)
Quarter: 2020Q4

REPORT INFORMATION
  Report Type: Spontaneous
  Country: FR (occurrence: FR)
  Receive Date: 20201021
  Receipt Date: 20201021
  Transmission Date: 20210114
  Serious: Yes (Hospitalization)
  Sender: FDA-Public Use
  Company Number: FR-ACCORD-205792

PATIENT
  Age: 81 Year
  Sex: Female
  Weight: 90 kg

DRUGS (15)
  1. DIFFU K [Concomitant]
     Active Substance: POTASSIUM CHLORIDE
     Route: 048
  2. KARDEGIC [Concomitant]
     Active Substance: ASPIRIN DL-LYSINE
     Dosage: STRENGTH  75 MG
     Route: 048
  3. SPAGULAX [Concomitant]
     Active Substance: PLANTAGO OVATA SEED
     Route: 048
  4. PREVISCAN [Concomitant]
     Dosage: STRENGTH 20 MG, SCORED TABLET
     Route: 048
  5. DEBRIDAT [Concomitant]
     Active Substance: TRIMEBUTINE MALEATE
     Dosage: STRENGTH 200 MG
     Route: 048
  6. SPASFON [Concomitant]
     Route: 048
  7. COVERSYL [Concomitant]
     Active Substance: PERINDOPRIL
     Dosage: STRENGTH  2.5 MG
     Route: 048
  8. DICLOFENAC [Concomitant]
     Active Substance: DICLOFENAC
     Route: 048
  9. TAHOR [Concomitant]
     Active Substance: ATORVASTATIN CALCIUM
     Dosage: STRENGTH  80 MG
     Route: 048
  10. FUROSEMIDE. [Suspect]
     Active Substance: FUROSEMIDE
     Indication: HYPERTENSION
     Route: 048
     Dates: end: 20170920
  11. ESIDREX [Suspect]
     Active Substance: HYDROCHLOROTHIAZIDE
     Indication: HYPERTENSION
     Dosage: STRENGTH  25 MG,
     Route: 048
     Dates: start: 20170906, end: 20170920
  12. BROMAZEPAM [Concomitant]
     Active Substance: BROMAZEPAM
     Route: 048
  13. CARDENSIEL [Concomitant]
     Active Substance: BISOPROLOL FUMARATE
     Dosage: STRENGTH 2.5 MG
     Route: 048
  14. MOLSIDOMINE [Concomitant]
     Active Substance: MOLSIDOMINE
     Route: 048
  15. INEXIUM [Concomitant]
     Active Substance: ESOMEPRAZOLE
     Dosage: STRENGTH 40 MG
     Route: 048

REACTIONS (5)
  - Apathy [Not Recovered/Not Resolved]
  - Hyponatraemia [Recovered/Resolved]
  - Hypokalaemia [Recovered/Resolved]
  - Feeding disorder [Not Recovered/Not Resolved]
  - Fall [Unknown]

NARRATIVE: CASE EVENT DATE: 201709
